FAERS Safety Report 9283735 (Version 1)
Quarter: 2013Q2

REPORT INFORMATION
  Report Type: Spontaneous
  Country: GB (occurrence: None)
  Receive Date: 20130506
  Receipt Date: 20130506
  Transmission Date: 20140414
  Serious: Yes (Other)
  Sender: FDA-Public Use
  Company Number: SYM-2013-03228

PATIENT
  Age: 43 Year
  Sex: Male

DRUGS (2)
  1. ELONTRIL [Suspect]
     Indication: PRODUCT USED FOR UNKNOWN INDICATION
     Dosage: 150 MG, 30 IN 1 D, ORAL
     Route: 048
     Dates: start: 20130420, end: 20130420
  2. PROTHIPENDYL HYDROCHLORIDE [Suspect]
     Dosage: 40 MG, 50 IN 1 D, ORAL
     Route: 048
     Dates: start: 20130420, end: 20130420

REACTIONS (3)
  - Intentional overdose [None]
  - Somnolence [None]
  - Tachycardia [None]
